FAERS Safety Report 8191935-5 (Version None)
Quarter: 2012Q1

REPORT INFORMATION
  Report Type: 
  Country: None (occurrence: None)
  Receive Date: 20120307
  Receipt Date: 20120301
  Transmission Date: 20120608
  Serious: Yes (Hospitalization, Other)
  Sender: FDA-Public Use
  Company Number: PHHY2012BR018613

PATIENT
  Sex: Female
  Weight: 65 kg

DRUGS (4)
  1. WARFARIN SODIUM [Concomitant]
     Indication: ANTICOAGULANT THERAPY
     Dosage: 5 MG, DAILY
  2. ASPIRIN [Concomitant]
     Indication: THROMBOSIS
     Dosage: 100 MG, UNK
  3. ADALAT [Concomitant]
     Indication: HYPERTENSION
     Dosage: UNK UKN, UNK
  4. DIOVAN HCT [Suspect]
     Indication: HYPERTENSION
     Dosage: 1 DF (160/12.5 MG), DAILY
     Dates: end: 20110101

REACTIONS (4)
  - THROMBOSIS [None]
  - HYPOTENSION [None]
  - FEMORAL ARTERY ANEURYSM [None]
  - BLOOD GLUCOSE INCREASED [None]
